FAERS Safety Report 22600769 (Version 2)
Quarter: 2023Q2

REPORT INFORMATION
  Report Type: Spontaneous
  Country: GB (occurrence: GB)
  Receive Date: 20230614
  Receipt Date: 20230621
  Transmission Date: 20230722
  Serious: Yes (Hospitalization, Other)
  Sender: FDA-Public Use
  Company Number: GB-SUN PHARMACEUTICAL INDUSTRIES LTD-2023R1-394302

PATIENT
  Sex: Male

DRUGS (3)
  1. FLECAINIDE [Suspect]
     Active Substance: FLECAINIDE
     Indication: Sinus rhythm
     Dosage: 2 MILLIGRAM/KILOGRAM, TID
     Route: 065
  2. ESMOLOL [Concomitant]
     Active Substance: ESMOLOL HYDROCHLORIDE
     Indication: Tachycardia foetal
     Dosage: UNK
     Route: 065
  3. PROPRANOLOL [Concomitant]
     Active Substance: PROPRANOLOL HYDROCHLORIDE
     Indication: Tachycardia foetal
     Dosage: 1 MILLIGRAM/KILOGRAM, TID
     Route: 048

REACTIONS (3)
  - Toxicity to various agents [Unknown]
  - Electrocardiogram change [Unknown]
  - Gastroenteritis [Recovered/Resolved]
